FAERS Safety Report 12439314 (Version 1)
Quarter: 2016Q2

REPORT INFORMATION
  Report Type: Spontaneous
  Country: US (occurrence: US)
  Receive Date: 20160606
  Receipt Date: 20160606
  Transmission Date: 20160815
  Serious: Yes (Other)
  Sender: FDA-Public Use
  Company Number: US-SA-2016SA104417

PATIENT
  Age: 66 Year
  Sex: Female

DRUGS (1)
  1. ALLEGRA ALLERGY [Suspect]
     Active Substance: FEXOFENADINE HYDROCHLORIDE
     Indication: MULTIPLE ALLERGIES
     Route: 048
     Dates: start: 2009

REACTIONS (4)
  - Product difficult to swallow [Unknown]
  - Unevaluable event [Unknown]
  - Eye disorder [Unknown]
  - Gastric operation [Unknown]

NARRATIVE: CASE EVENT DATE: 2009
